FAERS Safety Report 11972157 (Version 5)
Quarter: 2017Q2

REPORT INFORMATION
  Report Type: Spontaneous
  Country: US (occurrence: US)
  Receive Date: 20160128
  Receipt Date: 20170424
  Transmission Date: 20170829
  Serious: Yes (Hospitalization)
  Sender: FDA-Public Use
  Company Number: US-B.I. PHARMACEUTICALS,INC./RIDGEFIELD-2016-BI-03996BI

PATIENT
  Age: 64 Year
  Sex: Female

DRUGS (2)
  1. DULCOLAX (BISACODYL) [Suspect]
     Active Substance: BISACODYL
     Indication: BOWEL PREPARATION
     Route: 048
  2. PEG 3350 MIXED WITH GATORADE [Concomitant]
     Indication: COLONOSCOPY
     Route: 065

REACTIONS (1)
  - Colitis ischaemic [Not Recovered/Not Resolved]
